FAERS Safety Report 5349338-4 (Version None)
Quarter: 2007Q2

REPORT INFORMATION
  Report Type: 
  Country: None (occurrence: None)
  Receive Date: 20070607
  Receipt Date: 20070601
  Transmission Date: 20071010
  Serious: Yes (Death)
  Sender: FDA-Public Use
  Company Number: IT-SANOFI-SYNTHELABO-A06200700220

PATIENT
  Age: 64 Year
  Sex: Male

DRUGS (9)
  1. PLAVIX [Suspect]
     Indication: CORONARY ARTERIAL STENT INSERTION
     Route: 048
     Dates: start: 20070422, end: 20070422
  2. PLAVIX [Suspect]
     Route: 048
     Dates: start: 20070422
  3. MIRAPEXIN [Concomitant]
     Indication: PARKINSON'S DISEASE
     Dosage: UNK
     Route: 065
  4. SINEMET [Concomitant]
     Indication: PARKINSON'S DISEASE
     Dosage: UNK
     Route: 065
  5. FRAXIPARINA [Concomitant]
     Indication: CORONARY ARTERIAL STENT INSERTION
     Dosage: UNK
     Route: 058
     Dates: start: 20070423
  6. ACETYLSALICYLIC ACID SRT [Suspect]
     Indication: CORONARY ARTERIAL STENT INSERTION
     Route: 048
     Dates: start: 20070422
  7. HEPARIN [Concomitant]
     Indication: CORONARY ARTERIAL STENT INSERTION
     Route: 040
     Dates: start: 20070422, end: 20070422
  8. HEPARIN [Concomitant]
     Dosage: UNK
     Route: 065
     Dates: start: 20070422, end: 20070422
  9. RECOMBINANT TISSUE PLASMINOGEN ACTIVATOR [Concomitant]
     Indication: ACUTE MYOCARDIAL INFARCTION
     Route: 065
     Dates: start: 20070421, end: 20070421

REACTIONS (1)
  - THROMBOSIS IN DEVICE [None]
